FAERS Safety Report 7646027-8 (Version None)
Quarter: 2011Q3

REPORT INFORMATION
  Report Type: 
  Country: None (occurrence: None)
  Receive Date: 20110801
  Receipt Date: 20110722
  Transmission Date: 20111222
  Serious: Yes (Other)
  Sender: FDA-Public Use
  Company Number: FR-BRISTOL-MYERS SQUIBB COMPANY-15936149

PATIENT
  Age: 71 Year
  Sex: Female

DRUGS (1)
  1. ERBITUX [Suspect]
     Indication: OROPHARYNGEAL CANCER STAGE UNSPECIFIED
     Dosage: 1ST INF ON 21-APR-2011, 250MG/M2:UNK DATE
     Route: 042
     Dates: start: 20110421

REACTIONS (4)
  - PAIN [None]
  - RASH PAPULAR [None]
  - OEDEMA [None]
  - PRURITUS [None]
